FAERS Safety Report 9404613 (Version 2)
Quarter: 2013Q3

REPORT INFORMATION
  Report Type: Spontaneous
  Country: US (occurrence: US)
  Receive Date: 20130717
  Receipt Date: 20130822
  Transmission Date: 20140515
  Serious: Yes (Hospitalization, Other)
  Sender: FDA-Public Use
  Company Number: US-NOVOPROD-382497

PATIENT
  Age: 82 Year
  Sex: Male
  Weight: 60.77 kg

DRUGS (2)
  1. NOVOLOG MIX 70/30 FLEXPEN [Suspect]
     Indication: TYPE 2 DIABETES MELLITUS
     Dosage: 8 U BID
     Route: 058
     Dates: start: 200912
  2. ARMOUR THYROID [Concomitant]
     Indication: THYROID DISORDER
     Dosage: UNK
     Dates: start: 201306

REACTIONS (3)
  - Cardiac failure congestive [Unknown]
  - Hypersensitivity [Not Recovered/Not Resolved]
  - Blood glucose fluctuation [Not Recovered/Not Resolved]
